FAERS Safety Report 4314782-0 (Version None)
Quarter: 2004Q1

REPORT INFORMATION
  Report Type: 
  Country: None (occurrence: None)
  Receive Date: 20040310
  Receipt Date: 20040304
  Transmission Date: 20041129
  Serious: Yes (Hospitalization)
  Sender: FDA-Public Use
  Company Number: 200410723EU

PATIENT
  Sex: Female

DRUGS (4)
  1. ARAVA [Suspect]
     Indication: RHEUMATOID ARTHRITIS
     Route: 048
  2. METFORMIN [Concomitant]
     Route: 048
  3. GLICLAZIDUM [Concomitant]
     Route: 048
  4. CHLORTALIDON [Concomitant]
     Route: 048

REACTIONS (1)
  - BILIARY DILATATION [None]
